FAERS Safety Report 18084079 (Version 2)
Quarter: 2021Q1

REPORT INFORMATION
  Report Type: Report from Study
  Country: GB (occurrence: GB)
  Receive Date: 20200729
  Receipt Date: 20210226
  Transmission Date: 20210419
  Serious: Yes (Other)
  Sender: FDA-Public Use
  Company Number: GB-ROCHE-2646719

PATIENT
  Age: 81 Year
  Sex: Male
  Weight: 106 kg

DRUGS (1)
  1. TENECTEPLASE [Suspect]
     Active Substance: TENECTEPLASE
     Indication: ISCHAEMIC STROKE
     Route: 042
     Dates: start: 20191219, end: 20191219

REACTIONS (2)
  - Asthenia [Recovered/Resolved with Sequelae]
  - NIH stroke scale score increased [Recovered/Resolved with Sequelae]

NARRATIVE: CASE EVENT DATE: 20191220
